FAERS Safety Report 11862415 (Version 1)
Quarter: 2015Q4

REPORT INFORMATION
  Report Type: Spontaneous
  Country: US (occurrence: None)
  Receive Date: 20151222
  Receipt Date: 20151222
  Transmission Date: 20160305
  Serious: No
  Sender: FDA-Public Use
  Company Number: None

PATIENT
  Age: 92 Year
  Sex: Female
  Weight: 93 kg

DRUGS (1)
  1. FENTANYL. [Suspect]
     Active Substance: FENTANYL

REACTIONS (3)
  - Cerebrovascular accident [None]
  - Incorrect dose administered [None]
  - Wrong technique in product usage process [None]

NARRATIVE: CASE EVENT DATE: 20151213
